FAERS Safety Report 6547944-2 (Version None)
Quarter: 2010Q1

REPORT INFORMATION
  Report Type: 
  Country: None (occurrence: None)
  Receive Date: 20100124
  Receipt Date: 20091111
  Transmission Date: 20100710
  Serious: Yes (Hospitalization)
  Sender: FDA-Public Use
  Company Number: DE-ALEXION-A200900616

PATIENT

DRUGS (3)
  1. SOLIRIS [Suspect]
     Indication: PAROXYSMAL NOCTURNAL HAEMOGLOBINURIA
     Dosage: UNK
     Route: 042
     Dates: start: 20050601
  2. SOLIRIS [Suspect]
     Dosage: 900 MG, UNK
     Route: 042
  3. L-THYROXIN [Concomitant]
     Indication: HYPOTHYROIDISM
     Dosage: 75 UG, UNK
     Route: 048

REACTIONS (3)
  - ABDOMINAL ADHESIONS [None]
  - PELVIC INFLAMMATORY DISEASE [None]
  - TUBO-OVARIAN ABSCESS [None]
